FAERS Safety Report 14352349 (Version 1)
Quarter: 2018Q1

REPORT INFORMATION
  Report Type: Spontaneous
  Country: IT (occurrence: IT)
  Receive Date: 20180104
  Receipt Date: 20180104
  Transmission Date: 20180509
  Serious: Yes (Death)
  Sender: FDA-Public Use
  Company Number: IT-ELITE LABORATORIES INC.-2017ELT00020

PATIENT
  Age: 37 Year
  Sex: Male

DRUGS (6)
  1. GALENIC PRODUCTS [Concomitant]
     Route: 065
  2. PHENDIMETRAZINE. [Suspect]
     Active Substance: PHENDIMETRAZINE TARTRATE
     Indication: WEIGHT DECREASED
     Dosage: DOSAGE VARIED BETWEEN 180 AND 210 MG/D
     Route: 065
  3. DIPOTASSIUM CLORAZEPATE [Concomitant]
     Active Substance: CLORAZEPATE DIPOTASSIUM
     Route: 065
  4. THYROID HORMONES [Concomitant]
     Active Substance: UNSPECIFIED INGREDIENT
     Route: 065
  5. METFORMIN [Concomitant]
     Active Substance: METFORMIN HYDROCHLORIDE
     Route: 065
  6. IODOCASEIN [Concomitant]
     Active Substance: IODINATED CASEIN
     Route: 065

REACTIONS (2)
  - Sudden cardiac death [Fatal]
  - Myocarditis [Fatal]
